FAERS Safety Report 14968133 (Version 1)
Quarter: 2018Q2

REPORT INFORMATION
  Report Type: Spontaneous
  Country: PT (occurrence: PT)
  Receive Date: 20180604
  Receipt Date: 20180604
  Transmission Date: 20180711
  Serious: Yes (Death, Other)
  Sender: FDA-Public Use
  Company Number: PT-ACCORD-015461

PATIENT
  Age: 32 Year
  Sex: Male

DRUGS (10)
  1. LORAZEPAM. [Suspect]
     Active Substance: LORAZEPAM
  2. FLUOXETINE [Suspect]
     Active Substance: FLUOXETINE HYDROCHLORIDE
  3. HALOPERIDOL. [Suspect]
     Active Substance: HALOPERIDOL
  4. DIAZEPAM. [Suspect]
     Active Substance: DIAZEPAM
  5. PAROXETINE. [Suspect]
     Active Substance: PAROXETINE
  6. QUETIAPINE. [Suspect]
     Active Substance: QUETIAPINE
  7. BROMAZEPAM [Suspect]
     Active Substance: BROMAZEPAM
  8. OLANZAPINE. [Suspect]
     Active Substance: OLANZAPINE
  9. RISPERIDONE. [Suspect]
     Active Substance: RISPERIDONE
  10. NORDAZEPAM [Suspect]
     Active Substance: NORDAZEPAM

REACTIONS (2)
  - Completed suicide [Fatal]
  - Toxicity to various agents [Fatal]
